FAERS Safety Report 14119948 (Version 1)
Quarter: 2017Q4

REPORT INFORMATION
  Report Type: Spontaneous
  Country: US (occurrence: US)
  Receive Date: 20171024
  Receipt Date: 20171024
  Transmission Date: 20180321
  Serious: Yes (Other)
  Sender: FDA-Public Use
  Company Number: None

PATIENT
  Sex: Male
  Weight: 135 kg

DRUGS (7)
  1. VALSARTAN HCZ/25 [Concomitant]
  2. 81 MG ASPIRIN [Concomitant]
     Active Substance: ASPIRIN
  3. BYSTOLIC [Concomitant]
     Active Substance: NEBIVOLOL HYDROCHLORIDE
  4. METFORMIN [Concomitant]
     Active Substance: METFORMIN HYDROCHLORIDE
  5. NASAL (OXYMETAZOLINE HYDROCHLORIDE) [Suspect]
     Active Substance: OXYMETAZOLINE HYDROCHLORIDE
     Indication: NASAL CONGESTION
     Dosage: QUANTITY:2 SPRAY(S);?STRENGTH - 0.05% PER ML
     Route: 055
     Dates: start: 20171024, end: 20171024
  6. COSTCO MEN^S MULTI-VITAMIN [Concomitant]
  7. CRESTOR [Concomitant]
     Active Substance: ROSUVASTATIN CALCIUM

REACTIONS (4)
  - Product tampering [None]
  - Product odour abnormal [None]
  - Nasal discomfort [None]
  - Headache [None]

NARRATIVE: CASE EVENT DATE: 20171024
